FAERS Safety Report 8319340-9 (Version None)
Quarter: 2012Q1

REPORT INFORMATION
  Report Type: 
  Country: None (occurrence: None)
  Receive Date: 20120315
  Receipt Date: 20110126
  Transmission Date: 20120608
  Serious: No
  Sender: FDA-Public Use
  Company Number: PHHY2011US03695

PATIENT
  Age: 33 Year
  Sex: Female
  Weight: 85.4 kg

DRUGS (7)
  1. CYMBALTA [Concomitant]
  2. GILENYA [Suspect]
     Indication: MULTIPLE SCLEROSIS
     Dosage: 0.5 MG, DAILY, ORAL
     Route: 048
     Dates: start: 20110103
  3. COUMADIN [Concomitant]
  4. PRUPROPION SR [Concomitant]
  5. BUSPIRONE HCL [Concomitant]
  6. LYRICA [Concomitant]
  7. ADDERALL 10 [Concomitant]

REACTIONS (1)
  - DRY THROAT [None]
